FAERS Safety Report 9447283 (Version 3)
Quarter: 2013Q3

REPORT INFORMATION
  Report Type: Spontaneous
  Country: IT (occurrence: IT)
  Receive Date: 20130808
  Receipt Date: 20130924
  Transmission Date: 20140515
  Serious: Yes (Other)
  Sender: FDA-Public Use
  Company Number: IT-ROCHE-1258796

PATIENT
  Age: 73 Year
  Sex: Female
  Weight: 64 kg

DRUGS (6)
  1. PEGASYS [Suspect]
     Indication: CHRONIC HEPATITIS C
     Dosage: 180 MCG
     Route: 058
     Dates: start: 20130222, end: 20130805
  2. INCIVO [Suspect]
     Indication: CHRONIC HEPATITIS C
     Route: 048
     Dates: start: 20130222, end: 20130517
  3. ALPRAZOLAM [Concomitant]
     Route: 048
     Dates: start: 20130613
  4. RAMIPRIL [Concomitant]
     Indication: HYPERTENSION
     Route: 048
     Dates: start: 20130101
  5. REBETOL [Concomitant]
     Indication: CHRONIC HEPATITIS C
     Route: 048
     Dates: start: 20130422
  6. MODURETIC [Concomitant]
     Indication: HYPERTENSION
     Dosage: TABLET: 5MG+50MG
     Route: 048
     Dates: start: 20130101

REACTIONS (1)
  - Leukopenia [Recovering/Resolving]
